FAERS Safety Report 4355441-8 (Version None)
Quarter: 2004Q2

REPORT INFORMATION
  Report Type: 
  Country: None (occurrence: None)
  Receive Date: 20040504
  Receipt Date: 20040423
  Transmission Date: 20050107
  Serious: Yes (Hospitalization)
  Sender: FDA-Public Use
  Company Number: 2004027440

PATIENT
  Age: 50 Year
  Sex: Male

DRUGS (10)
  1. LIPITOR [Suspect]
     Indication: HYPERCHOLESTEROLAEMIA
     Dosage: 10 MG (DAILY), ORAL
     Route: 048
     Dates: start: 20040325
  2. ACETYLSALICYLIC ACID SRT [Concomitant]
  3. CANDESARTAN CILEXETIL (CANDESARTAN CILEXETIL) [Concomitant]
  4. TICLOPIDINE HCL [Concomitant]
  5. ISOSORBIDE MONONITRATE [Concomitant]
  6. NICORANDIL (NICORANDIL) [Concomitant]
  7. WARFARIN POTASSIUM (WARFARIN POTASSIUIM) [Concomitant]
  8. RABEPRAZOLE SODIUM (RABEPRAZOLE SODIUM) [Concomitant]
  9. FERROUS CITRATE [Concomitant]
  10. TEPRENONE (TEPRENONE) [Concomitant]

REACTIONS (3)
  - CARDIAC FAILURE [None]
  - FEELING ABNORMAL [None]
  - PNEUMONIA [None]
